FAERS Safety Report 13978441 (Version 1)
Quarter: 2017Q3

REPORT INFORMATION
  Report Type: Spontaneous
  Country: US (occurrence: US)
  Receive Date: 20170915
  Receipt Date: 20170915
  Transmission Date: 20171128
  Serious: No
  Sender: FDA-Public Use
  Company Number: US-ACTELION-A-NJ2017-159648

PATIENT
  Age: 80 Year
  Sex: Female

DRUGS (20)
  1. HYDROCODONE/ACETAMINOPHEN [Concomitant]
     Active Substance: ACETAMINOPHEN\HYDROCODONE
  2. CLARITIN [Concomitant]
     Active Substance: LORATADINE
  3. DOXYCYCLINE HYCLATE. [Concomitant]
     Active Substance: DOXYCYCLINE HYCLATE
  4. IRON [Concomitant]
     Active Substance: IRON
     Dosage: 500 MG, UNK
  5. GELNIQUE [Concomitant]
     Active Substance: OXYBUTYNIN
  6. POTASSIUM [Concomitant]
     Active Substance: POTASSIUM
  7. METHOTREXATE. [Concomitant]
     Active Substance: METHOTREXATE
  8. DORZOLOMIDE HYDROCHLORIDE [Concomitant]
  9. LEVOTHYROXINE SODIUM. [Concomitant]
     Active Substance: LEVOTHYROXINE SODIUM
  10. SUPREP BOWEL PREP [Concomitant]
     Active Substance: MAGNESIUM SULFATE\POTASSIUM SULFATE\SODIUM SULFATE
  11. AMLODIPINE BESYLATE. [Concomitant]
     Active Substance: AMLODIPINE BESYLATE
  12. NEXIUM [Concomitant]
     Active Substance: ESOMEPRAZOLE MAGNESIUM
  13. SYMBICORT [Concomitant]
     Active Substance: BUDESONIDE\FORMOTEROL FUMARATE DIHYDRATE
  14. OPSUMIT [Suspect]
     Active Substance: MACITENTAN
     Indication: PRODUCT USED FOR UNKNOWN INDICATION
     Dosage: 10 MG, QD
     Route: 048
     Dates: start: 20170719
  15. ALDACTONE [Concomitant]
     Active Substance: SPIRONOLACTONE
  16. FOLIC ACID. [Concomitant]
     Active Substance: FOLIC ACID
  17. OMEPRAZOLE. [Concomitant]
     Active Substance: OMEPRAZOLE
  18. MUCINEX [Concomitant]
     Active Substance: GUAIFENESIN
  19. ONDANSETRONE HIKMA [Concomitant]
     Active Substance: ONDANSETRON
  20. SPIRONOLACTONE. [Concomitant]
     Active Substance: SPIRONOLACTONE

REACTIONS (1)
  - Arthritis [Unknown]
